FAERS Safety Report 20664386 (Version 3)
Quarter: 2022Q2

REPORT INFORMATION
  Report Type: Spontaneous
  Country: CN (occurrence: None)
  Receive Date: 20220401
  Receipt Date: 20220426
  Transmission Date: 20220721
  Serious: Yes (Hospitalization, Other)
  Sender: FDA-Public Use
  Company Number: 2022A130879

PATIENT
  Age: 70 Year
  Sex: Female

DRUGS (1)
  1. SYMBICORT [Suspect]
     Active Substance: BUDESONIDE\FORMOTEROL FUMARATE DIHYDRATE
     Indication: Tracheitis
     Route: 055

REACTIONS (4)
  - Cerebral haemorrhage [Not Recovered/Not Resolved]
  - Hemiplegia [Not Recovered/Not Resolved]
  - Cerebral haemangioma [Not Recovered/Not Resolved]
  - Wrong technique in device usage process [Recovered/Resolved]

NARRATIVE: CASE EVENT DATE: 20210301
